FAERS Safety Report 12771442 (Version 2)
Quarter: 2016Q4

REPORT INFORMATION
  Report Type: Spontaneous
  Country: US (occurrence: US)
  Receive Date: 20160922
  Receipt Date: 20161004
  Transmission Date: 20170207
  Serious: No
  Sender: FDA-Public Use
  Company Number: US-AMGEN-USASP2016018227

PATIENT
  Age: 79 Year
  Sex: Male

DRUGS (4)
  1. NEUPOGEN [Suspect]
     Active Substance: FILGRASTIM
     Indication: METASTASES TO BONE
     Dosage: UNK
     Route: 065
  2. CARBOPLATIN. [Concomitant]
     Active Substance: CARBOPLATIN
  3. XGEVA [Suspect]
     Active Substance: DENOSUMAB
     Indication: METASTASES TO BONE
     Dosage: UNK
     Route: 065
     Dates: end: 201512
  4. PACLITAXEL. [Concomitant]
     Active Substance: PACLITAXEL

REACTIONS (1)
  - Bone pain [Recovered/Resolved]
